FAERS Safety Report 5122260-4 (Version None)
Quarter: 2006Q4

REPORT INFORMATION
  Report Type: 
  Country: None (occurrence: None)
  Receive Date: 20061003
  Receipt Date: 20060920
  Transmission Date: 20070319
  Serious: Yes (Other)
  Sender: FDA-Public Use
  Company Number: HQWYE026922SEP06

PATIENT
  Age: 52 Year
  Sex: Male
  Weight: 72.19 kg

DRUGS (12)
  1. EFFEXOR XR [Suspect]
     Indication: DEPRESSION
     Dosage: 150 MG 1X PER 1 DAY, ORAL
     Route: 048
     Dates: start: 20060722, end: 20060914
  2. PREVACID [Concomitant]
  3. CAFFEINE [Concomitant]
  4. MULTI-VITAMINS [Concomitant]
  5. OMEGA-3 TRIGLYCERIDES [Concomitant]
  6. VITAMIN B COMPLEX (CALCIUM PANTOTHENATE/NICOTINAMIDE/PYRIDOXIN HYDROCH [Concomitant]
  7. GLUCOSAMINE SULFATE [Concomitant]
  8. ASCORBIC ACID [Concomitant]
  9. CALCIUM GLUCONATE [Concomitant]
  10. IBUPROFEN [Concomitant]
  11. MELATONIN [Concomitant]
  12. EXCEDRIN (ACETYLSALICYLIC ACID/CAFFEINE/PARACETAMOL/SALICYLAMIDE) [Concomitant]

REACTIONS (6)
  - ABNORMAL DREAMS [None]
  - ANGER [None]
  - CONDITION AGGRAVATED [None]
  - DEPRESSION [None]
  - POOR QUALITY SLEEP [None]
  - SUICIDAL IDEATION [None]
